FAERS Safety Report 6686477-X (Version None)
Quarter: 2010Q2

REPORT INFORMATION
  Report Type: 
  Country: None (occurrence: None)
  Receive Date: 20100414
  Receipt Date: 20100405
  Transmission Date: 20101027
  Serious: Yes (Other)
  Sender: FDA-Public Use
  Company Number: 20108373

PATIENT
  Age: 72 Year
  Sex: Male

DRUGS (1)
  1. LIORESAL [Suspect]
     Indication: MUSCLE SPASTICITY
     Dosage: 75 MCG, DAILY, INTRATHECAL
     Route: 037

REACTIONS (10)
  - CELLULITIS [None]
  - DEVICE RELATED INFECTION [None]
  - DIZZINESS [None]
  - INCISION SITE INFECTION [None]
  - LOSS OF CONSCIOUSNESS [None]
  - OEDEMA [None]
  - RASH [None]
  - SEROMA [None]
  - SWELLING FACE [None]
  - WOUND COMPLICATION [None]
